FAERS Safety Report 8051525-1 (Version None)
Quarter: 2012Q1

REPORT INFORMATION
  Report Type: 
  Country: None (occurrence: None)
  Receive Date: 20120117
  Receipt Date: 20120111
  Transmission Date: 20120608
  Serious: No
  Sender: FDA-Public Use
  Company Number: US-BAYER-2012-005009

PATIENT
  Age: 78 Year
  Sex: Female
  Weight: 68 kg

DRUGS (3)
  1. ARTHRITIS MEDICATION [Concomitant]
     Indication: ARTHRITIS
  2. CHOLESTEROL [Concomitant]
  3. ALEVE (CAPLET) [Suspect]
     Indication: ARTHRITIS
     Dosage: 2 U, QD WITH FOOD
     Route: 048
     Dates: start: 20111001

REACTIONS (1)
  - NO ADVERSE EVENT [None]
